FAERS Safety Report 4678594-0 (Version None)
Quarter: 2005Q2

REPORT INFORMATION
  Report Type: 
  Country: None (occurrence: None)
  Receive Date: 20050527
  Receipt Date: 20050513
  Transmission Date: 20051028
  Serious: Yes (Hospitalization, Other)
  Sender: FDA-Public Use
  Company Number: CIP05001125

PATIENT
  Age: 41 Year
  Sex: Male

DRUGS (4)
  1. ASACOL [Suspect]
     Indication: COLITIS ULCERATIVE
     Dosage: 500 MG THREE TIMES DAILY, ORAL
     Route: 048
  2. ETHAMBUTOL (ETHAMBUTOL) [Concomitant]
  3. ISONIAZID [Concomitant]
  4. RIFAMPICINE (RIFAMPICIN) [Concomitant]

REACTIONS (17)
  - ARTHRALGIA [None]
  - BLOOD IMMUNOGLOBULIN G INCREASED [None]
  - BLOOD IMMUNOGLOBULIN M INCREASED [None]
  - EOSINOPHILIA [None]
  - HAEMATURIA [None]
  - KIDNEY SMALL [None]
  - LEUKOCYTURIA [None]
  - LYMPHOCYTE PERCENTAGE DECREASED [None]
  - NEPHRITIS INTERSTITIAL [None]
  - NEPHROSCLEROSIS [None]
  - NEUTROPHIL PERCENTAGE INCREASED [None]
  - PROTEINURIA [None]
  - RENAL FAILURE ACUTE [None]
  - RENAL INTERSTITIAL FIBROSIS [None]
  - RENAL TUBULAR ATROPHY [None]
  - RENAL TUBULAR NECROSIS [None]
  - URINARY CASTS [None]
